FAERS Safety Report 6032105-6 (Version None)
Quarter: 2009Q1

REPORT INFORMATION
  Report Type: 
  Country: None (occurrence: None)
  Receive Date: 20090107
  Receipt Date: 20081223
  Transmission Date: 20090719
  Serious: No
  Sender: FDA-Public Use
  Company Number: 14454250

PATIENT
  Sex: Male

DRUGS (4)
  1. NALTREXONE HYDROCHLORIDE [Suspect]
  2. MIRTAZAPINE [Suspect]
  3. METHADONE HCL [Suspect]
  4. ALCOHOL [Suspect]

REACTIONS (4)
  - DIARRHOEA [None]
  - DRUG INTERACTION [None]
  - EPILEPSY [None]
  - VOMITING PROJECTILE [None]
